FAERS Safety Report 26197951 (Version 1)
Quarter: 2025Q4

REPORT INFORMATION
  Report Type: Spontaneous
  Country: US (occurrence: US)
  Receive Date: 20251224
  Receipt Date: 20251224
  Transmission Date: 20260118
  Serious: Yes (Other)
  Sender: AMGEN
  Company Number: US-AMGEN-USASP2025250291

PATIENT
  Age: 51 Year
  Sex: Female

DRUGS (1)
  1. MVASI [Suspect]
     Active Substance: BEVACIZUMAB-AWWB
     Indication: Colon cancer
     Dosage: 1600 MILLIGRAM (4 X 400 MG VIALS OF MVASI)
     Route: 065

REACTIONS (1)
  - Blood bilirubin abnormal [Unknown]

NARRATIVE: CASE EVENT DATE: 20251202
